FAERS Safety Report 12823515 (Version 1)
Quarter: 2016Q4

REPORT INFORMATION
  Report Type: Report from Study
  Country: CO (occurrence: CO)
  Receive Date: 20161007
  Receipt Date: 20161007
  Transmission Date: 20170207
  Serious: Yes (Death, Life-Threatening, Hospitalization, Other)
  Sender: FDA-Public Use
  Company Number: CO-AMGEN-COLSL2016135238

PATIENT
  Age: 75 Year
  Sex: Female

DRUGS (1)
  1. NPLATE [Suspect]
     Active Substance: ROMIPLOSTIM
     Indication: IMMUNE THROMBOCYTOPENIC PURPURA
     Dosage: 125 MUG, QWK
     Route: 058
     Dates: start: 20150813, end: 20160906

REACTIONS (3)
  - Cardio-respiratory arrest [Fatal]
  - Thrombocytopenia [Fatal]
  - Dyspnoea [Fatal]

NARRATIVE: CASE EVENT DATE: 20160906
